FAERS Safety Report 9156917 (Version 1)
Quarter: 2013Q1

REPORT INFORMATION
  Report Type: Spontaneous
  Country: PK (occurrence: None)
  Receive Date: 20130206
  Receipt Date: 20130206
  Transmission Date: 20140127
  Serious: Yes (Other)
  Sender: FDA-Public Use
  Company Number: FK201300310

PATIENT
  Age: 23 Year
  Sex: Male

DRUGS (1)
  1. CISPLATIN (MANUFACTURER UNKNOWN){CISPLATIN)(CISPLATIN) [Suspect]
     Indication: TESTICULAR GERM CELL TUMOUR MIXED STAGE I

REACTIONS (1)
  - Posterior reversible encephalopathy syndrome [None]
